FAERS Safety Report 18100958 (Version 3)
Quarter: 2020Q4

REPORT INFORMATION
  Report Type: Report from Study
  Country: US (occurrence: US)
  Receive Date: 20200731
  Receipt Date: 20201201
  Transmission Date: 20210113
  Serious: No
  Sender: FDA-Public Use
  Company Number: NVSC2020US214367

PATIENT
  Sex: Male

DRUGS (1)
  1. ENTRESTO [Suspect]
     Active Substance: SACUBITRIL\VALSARTAN
     Indication: CARDIAC FAILURE
     Dosage: 1 DF, QD (49/51) MG
     Route: 048
     Dates: start: 2020

REACTIONS (3)
  - Blood sodium decreased [Unknown]
  - Weight increased [Unknown]
  - Headache [Recovered/Resolved]
